FAERS Safety Report 18476757 (Version 8)
Quarter: 2022Q1

REPORT INFORMATION
  Report Type: Report from Study
  Country: AR (occurrence: AR)
  Receive Date: 20201107
  Receipt Date: 20220224
  Transmission Date: 20220423
  Serious: Yes (Death, Life-Threatening, Hospitalization, Other)
  Sender: FDA-Public Use
  Company Number: AR-TAKEDA-AR201735459

PATIENT
  Age: 11 Year
  Sex: Male
  Weight: 15 kg

DRUGS (3)
  1. IDURSULFASE [Suspect]
     Active Substance: IDURSULFASE
     Indication: Mucopolysaccharidosis II
     Dosage: 0.5 MILLIGRAM/KILOGRAM, 1/WEEK
     Route: 042
     Dates: start: 20110616
  2. IDURSULFASE [Suspect]
     Active Substance: IDURSULFASE
     Dosage: UNK UNK
     Route: 042
     Dates: start: 20140828
  3. IDURSULFASE [Suspect]
     Active Substance: IDURSULFASE
     Dosage: 0.5 MILLIGRAM/KILOGRAM
     Route: 042
     Dates: start: 20150707

REACTIONS (7)
  - COVID-19 [Fatal]
  - Disease progression [Fatal]
  - Pneumonia bacterial [Unknown]
  - Pneumonia aspiration [Unknown]
  - Bradycardia [Not Recovered/Not Resolved]
  - Gastric disorder [Unknown]
  - Heart rate decreased [Recovering/Resolving]

NARRATIVE: CASE EVENT DATE: 20171210
